FAERS Safety Report 18724411 (Version 1)
Quarter: 2021Q1

REPORT INFORMATION
  Report Type: Spontaneous
  Country: US (occurrence: US)
  Receive Date: 20210110
  Receipt Date: 20210110
  Transmission Date: 20210419
  Serious: Yes (Hospitalization)
  Sender: FDA-Public Use
  Company Number: None

PATIENT
  Age: 33 Year
  Sex: Female
  Weight: 99 kg

DRUGS (3)
  1. PREDNISONE 30 MG [Suspect]
     Active Substance: PREDNISONE
  2. SUBOXONE [Concomitant]
     Active Substance: BUPRENORPHINE HYDROCHLORIDE\NALOXONE HYDROCHLORIDE
  3. LEVOFLOXACIN 500 MG TAB [Suspect]
     Active Substance: LEVOFLOXACIN
     Indication: BRONCHITIS
     Dosage: ?          QUANTITY:1 TABLET(S);?
     Route: 048

REACTIONS (7)
  - Blood potassium decreased [None]
  - Dyspnoea [None]
  - Skin discolouration [None]
  - Consciousness fluctuating [None]
  - Loss of consciousness [None]
  - Paraesthesia oral [None]
  - Transient ischaemic attack [None]

NARRATIVE: CASE EVENT DATE: 20210107
